FAERS Safety Report 24194838 (Version 3)
Quarter: 2024Q3

REPORT INFORMATION
  Report Type: Spontaneous
  Country: JP (occurrence: JP)
  Receive Date: 20240809
  Receipt Date: 20240909
  Transmission Date: 20241016
  Serious: Yes (Other)
  Sender: GILEAD
  Company Number: JP-GILEAD-2024-0682963

PATIENT
  Age: 63 Year
  Sex: Male

DRUGS (1)
  1. YESCARTA [Suspect]
     Active Substance: AXICABTAGENE CILOLEUCEL
     Indication: Diffuse large B-cell lymphoma
     Dosage: UNK
     Route: 065

REACTIONS (3)
  - Urinary tract obstruction [Unknown]
  - Renal impairment [Unknown]
  - Disease progression [Unknown]
